FAERS Safety Report 5232450-8 (Version None)
Quarter: 2007Q1

REPORT INFORMATION
  Report Type: 
  Country: None (occurrence: None)
  Receive Date: 20070205
  Receipt Date: 20061211
  Transmission Date: 20070707
  Serious: Yes (Life-Threatening)
  Sender: FDA-Public Use
  Company Number: 2007SP001443

PATIENT
  Age: 58 Year
  Sex: Female

DRUGS (32)
  1. RINDERON (BETAMETHASONE SODIUM PHOSPHATE) (BETAMETHASONE SODIUM PHOSPH [Suspect]
     Indication: ANGIOPATHY
     Dosage: 8 MG; IV; SEE IMAGE
     Route: 042
     Dates: start: 20051122, end: 20051122
  2. RINDERON (BETAMETHASONE SODIUM PHOSPHATE) (BETAMETHASONE SODIUM PHOSPH [Suspect]
     Indication: STOMATITIS
     Dosage: 8 MG; IV; SEE IMAGE
     Route: 042
     Dates: start: 20051122, end: 20051122
  3. RINDERON (BETAMETHASONE SODIUM PHOSPHATE) (BETAMETHASONE SODIUM PHOSPH [Suspect]
     Indication: ANGIOPATHY
     Dosage: 8 MG; IV; SEE IMAGE
     Route: 042
     Dates: start: 20051215, end: 20051218
  4. RINDERON (BETAMETHASONE SODIUM PHOSPHATE) (BETAMETHASONE SODIUM PHOSPH [Suspect]
     Indication: STOMATITIS
     Dosage: 8 MG; IV; SEE IMAGE
     Route: 042
     Dates: start: 20051215, end: 20051218
  5. OXYCONTIN [Suspect]
     Indication: CANCER PAIN
     Dosage: 10 MG; PO; SEE IMAGE
     Route: 048
     Dates: start: 20051114, end: 20051127
  6. OXYCONTIN [Suspect]
     Indication: CANCER PAIN
     Dosage: 10 MG; PO; SEE IMAGE
     Route: 048
     Dates: start: 20051128, end: 20051130
  7. OXYCONTIN [Suspect]
     Indication: CANCER PAIN
     Dosage: 10 MG; PO; SEE IMAGE
     Route: 048
     Dates: start: 20051201, end: 20051215
  8. OXYCONTIN [Suspect]
     Indication: CANCER PAIN
     Dosage: 10 MG; PO; SEE IMAGE
     Route: 048
     Dates: start: 20051215, end: 20051220
  9. OXYCONTIN [Suspect]
     Indication: CANCER PAIN
     Dosage: 10 MG; PO; SEE IMAGE
     Route: 048
     Dates: start: 20051221, end: 20051221
  10. OXYCONTIN [Suspect]
     Indication: CANCER PAIN
     Dosage: 10 MG; PO; SEE IMAGE
     Route: 048
     Dates: start: 20051222, end: 20051228
  11. TAXOTERE [Suspect]
     Indication: HYPOPHARYNGEAL CANCER
     Dosage: 85 MG; IV; SEE IMAGE
     Route: 042
     Dates: start: 20051122, end: 20051122
  12. TAXOTERE [Suspect]
     Indication: HYPOPHARYNGEAL CANCER
     Dosage: 85 MG; IV; SEE IMAGE
     Route: 042
     Dates: start: 20051215, end: 20051215
  13. CISPLATIN [Suspect]
     Indication: HYPOPHARYNGEAL CANCER
     Dosage: 85 MG; IV; SEE IMAGE
     Route: 042
     Dates: start: 20051122, end: 20051122
  14. CISPLATIN [Suspect]
     Indication: HYPOPHARYNGEAL CANCER
     Dosage: 85 MG; IV; SEE IMAGE
     Route: 042
     Dates: start: 20051215, end: 20051215
  15. FLUOROURACIL [Suspect]
     Indication: HYPOPHARYNGEAL CANCER
     Dosage: 1000 MG; IV; SEE IMAGE
     Route: 042
     Dates: start: 20051122, end: 20051125
  16. FLUOROURACIL [Suspect]
     Indication: METASTASES TO NECK
     Dosage: 1000 MG; IV; SEE IMAGE
     Route: 042
     Dates: start: 20051122, end: 20051125
  17. FLUOROURACIL [Suspect]
     Indication: HYPOPHARYNGEAL CANCER
     Dosage: 1000 MG; IV; SEE IMAGE
     Route: 042
     Dates: start: 20051215, end: 20051218
  18. FLUOROURACIL [Suspect]
     Indication: METASTASES TO NECK
     Dosage: 1000 MG; IV; SEE IMAGE
     Route: 042
     Dates: start: 20051215, end: 20051218
  19. NOVAMIN [Concomitant]
  20. HYPEN [Concomitant]
  21. THYRADIN [Concomitant]
  22. VOLTAREN [Concomitant]
  23. OPSO [Concomitant]
  24. LENDORMIN D [Concomitant]
  25. MYSLEE [Concomitant]
  26. DEPAS [Concomitant]
  27. DROLEPTAN [Concomitant]
  28. VOLTAREN [Concomitant]
  29. ROPION [Concomitant]
  30. KYTRIL [Concomitant]
  31. PRIMPERAN [Concomitant]
  32. NEUTROGIN [Concomitant]

REACTIONS (2)
  - BONE MARROW FAILURE [None]
  - SOMNOLENCE [None]
